FAERS Safety Report 7519801-6 (Version None)
Quarter: 2011Q2

REPORT INFORMATION
  Report Type: 
  Country: None (occurrence: None)
  Receive Date: 20110602
  Receipt Date: 20100609
  Transmission Date: 20111010
  Serious: No
  Sender: FDA-Public Use
  Company Number: US-MYLANLABS-BN-1-22982217

PATIENT

DRUGS (6)
  1. PROTONIX [Concomitant]
  2. MULTI-VITAMIN [Concomitant]
  3. RIMSO-50 [Suspect]
     Indication: CYSTITIS INTERSTITIAL
     Dosage: 50 ML, ONCE
     Route: 043
     Dates: start: 20100512, end: 20100512
  4. ELAVIL [Concomitant]
  5. DIOVAN [Concomitant]
  6. CELEBREX [Concomitant]

REACTIONS (5)
  - URINARY TRACT INFECTION [None]
  - BLADDER PAIN [None]
  - POLLAKIURIA [None]
  - DISCOMFORT [None]
  - BLADDER DISCOMFORT [None]
